FAERS Safety Report 7740323-1 (Version None)
Quarter: 2011Q3

REPORT INFORMATION
  Report Type: 
  Country: None (occurrence: None)
  Receive Date: 20110909
  Receipt Date: 20110829
  Transmission Date: 20111222
  Serious: Yes (Hospitalization)
  Sender: FDA-Public Use
  Company Number: JP-PFIZER INC-2011171032

PATIENT
  Age: 62 Year
  Sex: Male
  Weight: 53.8 kg

DRUGS (7)
  1. ASPIRIN [Concomitant]
     Dosage: UNK
     Route: 048
     Dates: start: 20000101
  2. LOSARTAN POTASSIUM [Concomitant]
     Dosage: UNK
     Route: 048
     Dates: start: 20000101
  3. LIPITOR [Suspect]
     Dosage: 5 MG, 1X/DAY
     Route: 048
     Dates: start: 20000101, end: 20110720
  4. SAWADOL L [Concomitant]
     Dosage: UNK
     Route: 048
     Dates: start: 20000101, end: 20110727
  5. MARZULENE S [Concomitant]
     Dosage: UNK
     Dates: start: 20000101
  6. TICLOPIDINE HYDROCHLORIDE [Suspect]
     Dosage: 200 MG, DAILY
     Route: 048
     Dates: start: 20000101, end: 20110720
  7. AMLODIPINE [Concomitant]
     Dosage: UNK
     Dates: start: 20000101

REACTIONS (1)
  - INTERSTITIAL LUNG DISEASE [None]
